FAERS Safety Report 4456023-X (Version None)
Quarter: 2004Q3

REPORT INFORMATION
  Report Type: 
  Country: None (occurrence: None)
  Receive Date: 20040920
  Receipt Date: 20040907
  Transmission Date: 20050211
  Serious: Yes (Hospitalization)
  Sender: FDA-Public Use
  Company Number: US013702

PATIENT
  Age: 59 Year
  Sex: Female

DRUGS (1)
  1. ACTIQ [Suspect]

REACTIONS (6)
  - ALCOHOL USE [None]
  - CARDIOVASCULAR DISORDER [None]
  - CONFUSIONAL STATE [None]
  - DISORIENTATION [None]
  - OVERDOSE [None]
  - RESPIRATORY DISORDER [None]
